FAERS Safety Report 5394220-X (Version None)
Quarter: 2007Q3

REPORT INFORMATION
  Report Type: 
  Country: None (occurrence: None)
  Receive Date: 20070723
  Receipt Date: 20070426
  Transmission Date: 20080115
  Serious: No
  Sender: FDA-Public Use
  Company Number: A0648878A

PATIENT
  Age: 87 Year
  Sex: Female

DRUGS (3)
  1. AVANDIA [Suspect]
     Dosage: 2MG PER DAY
     Route: 048
     Dates: start: 20070201
  2. MICARDIS [Concomitant]
  3. ZOCOR [Concomitant]

REACTIONS (1)
  - HAIR TEXTURE ABNORMAL [None]
